FAERS Safety Report 8101970-0 (Version None)
Quarter: 2012Q1

REPORT INFORMATION
  Report Type: 
  Country: None (occurrence: None)
  Receive Date: 20120131
  Receipt Date: 20120127
  Transmission Date: 20120608
  Serious: Yes (Hospitalization, Other)
  Sender: FDA-Public Use
  Company Number: US-AMGEN-USASP2011054408

PATIENT
  Age: 77 Year
  Sex: Male
  Weight: 81.179 kg

DRUGS (6)
  1. INSULIN [Concomitant]
  2. SOLUCORT [Concomitant]
     Indication: PREMEDICATION
  3. DEMEROL [Concomitant]
     Indication: PREMEDICATION
  4. BENADRYL [Concomitant]
  5. NPLATE [Suspect]
     Indication: IDIOPATHIC THROMBOCYTOPENIC PURPURA
     Dosage: 335 MUG, QWK
     Route: 058
     Dates: start: 20110803, end: 20111019
  6. ZANTAC [Concomitant]
     Indication: PREMEDICATION

REACTIONS (4)
  - DRUG HYPERSENSITIVITY [None]
  - TACHYCARDIA [None]
  - PYREXIA [None]
  - CHILLS [None]
